FAERS Safety Report 25988903 (Version 2)
Quarter: 2025Q4

REPORT INFORMATION
  Report Type: Spontaneous
  Country: RU (occurrence: RU)
  Receive Date: 20251103
  Receipt Date: 20251114
  Transmission Date: 20260117
  Serious: Yes (Death)
  Sender: BOEHRINGER INGELHEIM
  Company Number: RU-BoehringerIngelheim-2025-BI-104694

PATIENT
  Sex: Female

DRUGS (1)
  1. NINTEDANIB [Suspect]
     Active Substance: NINTEDANIB
     Indication: Microscopic polyangiitis
     Dates: start: 20241228, end: 20250204

REACTIONS (2)
  - Multiple organ dysfunction syndrome [Fatal]
  - Systemic scleroderma [Fatal]
